FAERS Safety Report 17584659 (Version 1)
Quarter: 2020Q1

REPORT INFORMATION
  Report Type: Spontaneous
  Country: FR (occurrence: FR)
  Receive Date: 20200326
  Receipt Date: 20200326
  Transmission Date: 20200409
  Serious: Yes (Hospitalization, Other)
  Sender: FDA-Public Use
  Company Number: FR-PFIZER INC-2020125374

PATIENT
  Age: 89 Year
  Sex: Female
  Weight: 58 kg

DRUGS (7)
  1. STAGID [Concomitant]
     Active Substance: METFORMIN PAMOATE
     Dosage: 1 DF, 1X/DAY
     Route: 048
  2. BISOCE [Suspect]
     Active Substance: BISOPROLOL
     Indication: ACUTE CORONARY SYNDROME
     Dosage: 1 DF, 1X/DAY
     Route: 048
     Dates: start: 20190729, end: 20190902
  3. KARDEGIC [Concomitant]
     Active Substance: ASPIRIN DL-LYSINE
     Dosage: 1 DF, 1X/DAY
     Route: 048
     Dates: start: 20190729
  4. ATORVASTATIN CALCIUM. [Suspect]
     Active Substance: ATORVASTATIN CALCIUM
     Indication: ACUTE CORONARY SYNDROME
     Dosage: 40 MG, 1X/DAY
     Route: 048
     Dates: start: 20190729, end: 20190817
  5. BRILIQUE [Suspect]
     Active Substance: TICAGRELOR
     Indication: ACUTE CORONARY SYNDROME
     Dosage: 2 DF, 1X/DAY
     Route: 048
     Dates: start: 20190729, end: 20190902
  6. PERINDOPRIL [Suspect]
     Active Substance: PERINDOPRIL
     Indication: ACUTE CORONARY SYNDROME
     Dosage: 4 MG, 1X/DAY
     Route: 048
     Dates: start: 20190729, end: 20190902
  7. LANSOPRAZOLE. [Concomitant]
     Active Substance: LANSOPRAZOLE
     Dosage: 15 MG, 1X/DAY
     Route: 048
     Dates: start: 20190729

REACTIONS (1)
  - Toxic skin eruption [Recovered/Resolved]

NARRATIVE: CASE EVENT DATE: 20190817
